FAERS Safety Report 23956971 (Version 3)
Quarter: 2024Q3

REPORT INFORMATION
  Report Type: Spontaneous
  Country: CO (occurrence: CO)
  Receive Date: 20240610
  Receipt Date: 20240918
  Transmission Date: 20241017
  Serious: No
  Sender: PFIZER
  Company Number: CO-PFIZER INC-202400181694

PATIENT
  Age: 8 Year
  Sex: Male

DRUGS (1)
  1. GENOTROPIN [Suspect]
     Active Substance: SOMATROPIN
     Dosage: 1 MG, DAILY
     Route: 058

REACTIONS (1)
  - Device mechanical issue [Unknown]
